FAERS Safety Report 8988614 (Version 1)
Quarter: 2012Q4

REPORT INFORMATION
  Report Type: Spontaneous
  Country: IT (occurrence: None)
  Receive Date: 20121219
  Receipt Date: 20121219
  Transmission Date: 20130627
  Serious: Yes (Life-Threatening)
  Sender: FDA-Public Use
  Company Number: 2012AP004176

PATIENT
  Age: 27 Year
  Sex: Female

DRUGS (3)
  1. TOPIRAMATE TABLETS [Suspect]
     Indication: PSYCHOMOTOR RETARDATION
     Dosage: TAB_FILM
     Route: 048
     Dates: start: 20121004, end: 20121006
  2. TOPIRAMATE TABLETS [Suspect]
     Indication: OFF LABEL USE
     Dosage: TAB_FILM
     Route: 048
     Dates: start: 20121004, end: 20121006
  3. TEGRETOL (CARBAMAZEPINE) UNKNOWN [Concomitant]

REACTIONS (2)
  - Epilepsy [None]
  - Off label use [None]
